FAERS Safety Report 24329424 (Version 6)
Quarter: 2025Q1

REPORT INFORMATION
  Report Type: Report from Study
  Country: CA (occurrence: CA)
  Receive Date: 20240917
  Receipt Date: 20250324
  Transmission Date: 20250408
  Serious: Yes (Life-Threatening, Hospitalization, Other)
  Sender: NOVARTIS
  Company Number: CA-002147023-NVSC2024CA183989

PATIENT
  Age: 76 Year
  Sex: Male
  Weight: 93.8 kg

DRUGS (2)
  1. COSENTYX [Suspect]
     Active Substance: SECUKINUMAB
     Indication: Product used for unknown indication
     Route: 058
     Dates: start: 20200320, end: 20200417
  2. COSENTYX [Suspect]
     Active Substance: SECUKINUMAB
     Route: 058
     Dates: start: 20200517, end: 202404

REACTIONS (25)
  - Hypovolaemia [Recovered/Resolved]
  - Dyschromatopsia [Recovered/Resolved]
  - Iron deficiency anaemia [Recovered/Resolved]
  - Gastrointestinal haemorrhage [Recovered/Resolved]
  - Fatigue [Recovered/Resolved]
  - Product administration interrupted [Recovered/Resolved]
  - Vomiting [Recovered/Resolved]
  - Haematemesis [Recovered/Resolved]
  - Barrett^s oesophagus [Not Recovered/Not Resolved]
  - Aortic arteriosclerosis [Not Recovered/Not Resolved]
  - Aortic dilatation [Not Recovered/Not Resolved]
  - Diverticulitis [Not Recovered/Not Resolved]
  - Tricuspid valve incompetence [Not Recovered/Not Resolved]
  - Portal hypertension [Not Recovered/Not Resolved]
  - Faeces discoloured [Recovered/Resolved]
  - Peripheral swelling [Not Recovered/Not Resolved]
  - Ventricular extrasystoles [Unknown]
  - Sinus arrhythmia [Unknown]
  - Hiatus hernia [Not Recovered/Not Resolved]
  - Gastritis [Unknown]
  - Inflammation [Recovered/Resolved]
  - Haemorrhage [Recovered/Resolved]
  - Anaemia [Recovered/Resolved]
  - Regurgitation [Unknown]
  - Cholelithiasis [Not Recovered/Not Resolved]

NARRATIVE: CASE EVENT DATE: 20220101
